FAERS Safety Report 6373565-0 (Version None)
Quarter: 2009Q3

REPORT INFORMATION
  Report Type: 
  Country: None (occurrence: None)
  Receive Date: 20090924
  Receipt Date: 20090213
  Transmission Date: 20100115
  Serious: No
  Sender: FDA-Public Use
  Company Number: US-ASTRAZENECA-2009UW04204

PATIENT
  Age: 46 Year
  Sex: Female
  Weight: 59 kg

DRUGS (7)
  1. SEROQUEL [Suspect]
     Indication: DEPRESSION
     Route: 048
     Dates: start: 20090121
  2. LABETALOL HCL [Concomitant]
  3. CARDIAZEM [Concomitant]
  4. OMEPRAZOLE [Concomitant]
  5. SUBOXONE [Concomitant]
  6. ZOPIDEN [Concomitant]
  7. CITPRAZAPAM [Concomitant]

REACTIONS (1)
  - FOOD CRAVING [None]
